FAERS Safety Report 7421485-2 (Version None)
Quarter: 2011Q1

REPORT INFORMATION
  Report Type: 
  Country: None (occurrence: None)
  Receive Date: 20110302
  Receipt Date: 20101122
  Transmission Date: 20110831
  Serious: No
  Sender: FDA-Public Use
  Company Number: 020329

PATIENT
  Sex: Female
  Weight: 93 kg

DRUGS (4)
  1. VITAMINE D VOOR SENIOREN [Concomitant]
  2. ZYRTEC [Concomitant]
  3. CIMZIA [Suspect]
     Indication: CROHN'S DISEASE
     Dosage: (400 MG 1X/MONTH SUBCUTANEOUS)
     Route: 058
     Dates: start: 20100923
  4. CIMZIA [Suspect]
     Indication: ARTHRITIS
     Dosage: (400 MG 1X/MONTH SUBCUTANEOUS)
     Route: 058
     Dates: start: 20100923

REACTIONS (6)
  - ONYCHOMYCOSIS [None]
  - NAIL AVULSION [None]
  - NAUSEA [None]
  - CROHN'S DISEASE [None]
  - HEPATIC ENZYME INCREASED [None]
  - BACK PAIN [None]
